FAERS Safety Report 4337126-7 (Version None)
Quarter: 2004Q1

REPORT INFORMATION
  Report Type: 
  Country: None (occurrence: None)
  Receive Date: 20040329
  Receipt Date: 20040202
  Transmission Date: 20041129
  Serious: No
  Sender: FDA-Public Use
  Company Number: USA040258231

PATIENT
  Age: 63 Year
  Sex: Female

DRUGS (9)
  1. STRATTERA [Suspect]
     Indication: ATTENTION DEFICIT/HYPERACTIVITY DISORDER
     Dosage: 40 MG/2 DAY
     Dates: start: 20040128
  2. PROZAC [Suspect]
     Dates: start: 19960101
  3. ACTOS [Concomitant]
  4. LISINOPRIL [Concomitant]
  5. PAXIL [Concomitant]
  6. ASPIRIN [Concomitant]
  7. DEXTROSTAT (DEXAMFETAMINE SULFATE) [Concomitant]
  8. STOOL SOFTENER (DOCUSATE SODIUM) [Concomitant]
  9. MILK OF MAGNESIA TAB [Concomitant]

REACTIONS (9)
  - AGGRESSION [None]
  - DYSPEPSIA [None]
  - ERUCTATION [None]
  - FLANK PAIN [None]
  - FREQUENT BOWEL MOVEMENTS [None]
  - INSOMNIA [None]
  - NAUSEA [None]
  - PAIN [None]
  - PERSONALITY CHANGE [None]
